FAERS Safety Report 7488428-7 (Version None)
Quarter: 2011Q2

REPORT INFORMATION
  Report Type: 
  Country: None (occurrence: None)
  Receive Date: 20110518
  Receipt Date: 20110511
  Transmission Date: 20111010
  Serious: Yes (Other)
  Sender: FDA-Public Use
  Company Number: CA-PFIZER INC-2011101222

PATIENT
  Age: 40 Year
  Sex: Female

DRUGS (4)
  1. LEVONORGESTREL + ETHINYL ESTRADIOL [Suspect]
     Dosage: UNK
     Dates: start: 20110201
  2. KEPPRA [Suspect]
     Dosage: UNK
  3. TOPIRAMATE [Suspect]
     Dosage: UNK
  4. CITALOPRAM [Concomitant]
     Dosage: UNK

REACTIONS (4)
  - FEELING HOT [None]
  - VAGINAL DISCHARGE [None]
  - DIZZINESS [None]
  - PETIT MAL EPILEPSY [None]
